FAERS Safety Report 24005162 (Version 1)
Quarter: 2024Q2

REPORT INFORMATION
  Report Type: Spontaneous
  Country: US (occurrence: None)
  Receive Date: 20240621
  Receipt Date: 20240621
  Transmission Date: 20240715
  Serious: No
  Sender: FDA-Public Use
  Company Number: None

PATIENT
  Sex: 0

DRUGS (1)
  1. TYSABRI [Suspect]
     Active Substance: NATALIZUMAB

REACTIONS (1)
  - JC polyomavirus test positive [None]
